FAERS Safety Report 7513214-9 (Version None)
Quarter: 2011Q2

REPORT INFORMATION
  Report Type: 
  Country: None (occurrence: None)
  Receive Date: 20110531
  Receipt Date: 20110509
  Transmission Date: 20111010
  Serious: Yes (Hospitalization, Other)
  Sender: FDA-Public Use
  Company Number: US-BAYER-2011-023185

PATIENT
  Age: 25 Year
  Sex: Female
  Weight: 90 kg

DRUGS (2)
  1. FLURBIPROFEN [Concomitant]
     Indication: PAIN
     Dosage: UNK UNK, QD
     Dates: start: 20070308
  2. YASMIN [Suspect]
     Indication: CONTRACEPTION
     Dosage: 1 DF, QD
     Dates: start: 20070101, end: 20070301

REACTIONS (6)
  - PULMONARY EMBOLISM [None]
  - DYSPNOEA [None]
  - CHEST PAIN [None]
  - PAINFUL RESPIRATION [None]
  - PULMONARY FIBROSIS [None]
  - NAUSEA [None]
